FAERS Safety Report 6448961-3 (Version None)
Quarter: 2009Q4

REPORT INFORMATION
  Report Type: 
  Country: None (occurrence: None)
  Receive Date: 20091120
  Receipt Date: 20091117
  Transmission Date: 20100525
  Serious: Yes (Hospitalization)
  Sender: FDA-Public Use
  Company Number: A0817826A

PATIENT
  Age: 55 Year
  Sex: Female
  Weight: 86.4 kg

DRUGS (3)
  1. AVANDIA [Suspect]
     Indication: DIABETES MELLITUS
     Route: 048
     Dates: start: 20040101, end: 20050101
  2. AVANDAMET [Suspect]
     Indication: DIABETES MELLITUS
     Route: 048
     Dates: start: 20040101, end: 20050101
  3. AVANDARYL [Suspect]
     Indication: DIABETES MELLITUS
     Route: 048
     Dates: start: 20040101, end: 20050101

REACTIONS (4)
  - CARDIAC DISORDER [None]
  - CONDITION AGGRAVATED [None]
  - LIVER DISORDER [None]
  - MYOCARDIAL INFARCTION [None]
